FAERS Safety Report 9184559 (Version 1)
Quarter: 2012Q4

REPORT INFORMATION
  Report Type: 
  Country: BR (occurrence: BR)
  Receive Date: 20121101
  Receipt Date: 20121101
  Transmission Date: 20130627
  Serious: Yes (Other)
  Sender: FDA-Public Use
  Company Number: BR-PFIZER INC-2012271532

PATIENT
  Age: 70 Year
  Sex: Female
  Weight: 54 kg

DRUGS (7)
  1. LYRICA [Suspect]
     Indication: CHRONIC PAIN
     Dosage: 75 mg, 1x/day
     Route: 048
  2. LYRICA [Suspect]
     Dosage: two capsules of 75mg, unspecified frequency
     Route: 048
  3. ALPRAZOLAM [Concomitant]
     Indication: ANXIETY
     Dosage: UNK
  4. ALENDRONATE SODIUM [Concomitant]
     Indication: OSTEOPOROSIS
     Dosage: UNK
  5. PURAN T4 [Concomitant]
     Indication: THYROID DISORDER
  6. REMERON [Concomitant]
     Indication: ANTIDEPRESSANT THERAPY
  7. TRAMAL [Concomitant]
     Indication: NEUROPATHIC PAIN

REACTIONS (5)
  - Hypersensitivity [Unknown]
  - Swelling face [Unknown]
  - Eye swelling [Unknown]
  - Disorientation [Unknown]
  - Feeling abnormal [Unknown]
